APPROVED DRUG PRODUCT: CLINDAMYCIN PHOSPHATE
Active Ingredient: CLINDAMYCIN PHOSPHATE
Strength: EQ 2% BASE
Dosage Form/Route: CREAM;VAGINAL
Application: A065139 | Product #001 | TE Code: AB
Applicant: FOUGERA PHARMACEUTICALS INC
Approved: Dec 27, 2004 | RLD: No | RS: No | Type: RX